FAERS Safety Report 17063218 (Version 1)
Quarter: 2019Q4

REPORT INFORMATION
  Report Type: Spontaneous
  Country: GB (occurrence: GB)
  Receive Date: 20191122
  Receipt Date: 20191122
  Transmission Date: 20200122
  Serious: Yes (Other)
  Sender: FDA-Public Use
  Company Number: GB-TEVA-2019-GB-1139353

PATIENT
  Age: 5 Year
  Sex: Male
  Weight: 20 kg

DRUGS (7)
  1. DEXAMETHASONE. [Concomitant]
     Active Substance: DEXAMETHASONE
  2. SALBUTAMOL [Concomitant]
     Active Substance: ALBUTEROL
  3. AMOXICILLIN. [Concomitant]
     Active Substance: AMOXICILLIN
  4. PREDNISOLONE. [Concomitant]
     Active Substance: PREDNISOLONE
  5. BECLOMETASONE [Concomitant]
     Active Substance: BECLOMETHASONE DIPROPIONATE
  6. TEVA UK MONTELUKAST [Suspect]
     Active Substance: MONTELUKAST SODIUM
     Indication: ASTHMA
     Dosage: 1 DOSAGEFORM
     Route: 048
     Dates: start: 20180810, end: 20180813
  7. CALPOL [Concomitant]
     Active Substance: ACETAMINOPHEN

REACTIONS (3)
  - Aggression [Not Recovered/Not Resolved]
  - Hostility [Unknown]
  - Crying [Unknown]

NARRATIVE: CASE EVENT DATE: 20180810
